FAERS Safety Report 9612645 (Version 1)
Quarter: 2013Q4

REPORT INFORMATION
  Report Type: Spontaneous
  Country: AT (occurrence: AT)
  Receive Date: 20131010
  Receipt Date: 20131010
  Transmission Date: 20140711
  Serious: Yes (Other)
  Sender: FDA-Public Use
  Company Number: AT-PFIZER INC-2013284818

PATIENT
  Age: 40 Year
  Sex: Male

DRUGS (1)
  1. VIAGRA [Suspect]
     Dosage: 25 MG, UNK

REACTIONS (1)
  - Cerebrovascular accident [Unknown]
